FAERS Safety Report 5280802-2 (Version None)
Quarter: 2007Q1

REPORT INFORMATION
  Report Type: 
  Country: None (occurrence: None)
  Receive Date: 20070329
  Receipt Date: 20070316
  Transmission Date: 20070707
  Serious: No
  Sender: FDA-Public Use
  Company Number: US-ELI_LILLY_AND_COMPANY-US200703003621

PATIENT
  Age: 41 Year
  Sex: Female

DRUGS (8)
  1. CYMBALTA [Suspect]
     Indication: DEPRESSION
     Dosage: 60 MG, DAILY (1/D)
     Route: 048
     Dates: start: 20060601
  2. ENALAPRIL MALEATE [Concomitant]
     Indication: MIGRAINE
  3. TRILEPTAL [Concomitant]
     Dosage: 300 MG, EACH MORNING
  4. TRILEPTAL [Concomitant]
     Dosage: 600 MG, EACH EVENING
  5. SYNTHROID [Concomitant]
  6. PREVACID [Concomitant]
  7. VITAMIN B-12 [Concomitant]
     Dosage: UNK, WEEKLY (1/W)
     Route: 030
  8. SEROQUEL [Concomitant]

REACTIONS (1)
  - HEPATIC ENZYME INCREASED [None]
